FAERS Safety Report 25876719 (Version 1)
Quarter: 2025Q4

REPORT INFORMATION
  Report Type: Spontaneous
  Country: US (occurrence: US)
  Receive Date: 20251003
  Receipt Date: 20251003
  Transmission Date: 20260118
  Serious: Yes (Other)
  Sender: CIPLA
  Company Number: US-CIPLA (EU) LIMITED-2025US11977

PATIENT

DRUGS (3)
  1. BUDESONIDE [Suspect]
     Active Substance: BUDESONIDE
     Indication: Eosinophilic oesophagitis
     Dosage: UNK, BID (BEFORE BREAKFAST AND BEFORE BED TIME), SINGLE DOSE AMPULES
     Dates: start: 2020
  2. BUDESONIDE [Suspect]
     Active Substance: BUDESONIDE
     Indication: Sarcoidosis
     Dosage: UNK, BID (BEFORE BREAKFAST AND BEFORE BED TIME),SINGLE DOSE AMPULES
     Dates: start: 2025
  3. OMEPRAZOLE [Concomitant]
     Active Substance: OMEPRAZOLE
     Indication: Eosinophilic oesophagitis
     Dosage: 20 MILLIGRAM, BID
     Route: 065

REACTIONS (4)
  - Oedematous kidney [Not Recovered/Not Resolved]
  - Lymphadenopathy [Unknown]
  - Off label use [Unknown]
  - Wrong technique in product usage process [Unknown]

NARRATIVE: CASE EVENT DATE: 20200101
